FAERS Safety Report 8016927-8 (Version None)
Quarter: 2012Q1

REPORT INFORMATION
  Report Type: 
  Country: None (occurrence: None)
  Receive Date: 20120102
  Receipt Date: 20111223
  Transmission Date: 20120608
  Serious: Yes (Hospitalization)
  Sender: FDA-Public Use
  Company Number: PHHY2011IT111911

PATIENT
  Sex: Female

DRUGS (5)
  1. STALEVO 100 [Suspect]
     Dosage: 100MG/ 25 MG/200 MG, 4 POSOLOGICAL UNITS
     Route: 048
     Dates: start: 20101019, end: 20111018
  2. PRAMIPEXOLE DIHYDROCHLORIDE [Suspect]
     Dosage: 2 POSOLOGICAL UNITS
     Route: 048
     Dates: start: 20101019, end: 20111018
  3. PAROXETINE [Suspect]
     Dosage: 10 MG/ML, UNK
     Route: 048
     Dates: start: 20101019, end: 20111018
  4. DURAGESIC-100 [Suspect]
     Dosage: 50 UG, UNK
     Route: 062
     Dates: start: 20101019, end: 20111018
  5. ENTUMIN [Suspect]
     Dosage: 15 DROPS
     Route: 048
     Dates: start: 20101019, end: 20111018

REACTIONS (4)
  - DYSKINESIA [None]
  - SOPOR [None]
  - PARAESTHESIA [None]
  - ORAL DISCOMFORT [None]
